FAERS Safety Report 8791769 (Version 1)
Quarter: 2012Q4

REPORT INFORMATION
  Report Type: 
  Country: EG (occurrence: EG)
  Receive Date: 20120918
  Receipt Date: 20120918
  Transmission Date: 20130627
  Serious: Yes (Other)
  Sender: FDA-Public Use
  Company Number: EG-SANOFI-AVENTIS-2012SA067551

PATIENT
  Age: 32 Year
  Sex: Female

DRUGS (2)
  1. LANTUS [Suspect]
     Indication: TYPE II DIABETES MELLITUS
     Dosage: Dose:5 unit(s)
     Route: 058
     Dates: start: 20120606
  2. LANTUS [Suspect]
     Indication: TYPE II DIABETES MELLITUS
     Dosage: Dose:10 unit(s)
     Route: 058

REACTIONS (2)
  - Abortion [Unknown]
  - Exposure during pregnancy [Unknown]
